FAERS Safety Report 10349387 (Version 3)
Quarter: 2014Q4

REPORT INFORMATION
  Report Type: Report from Study
  Country: AR (occurrence: AR)
  Receive Date: 20140730
  Receipt Date: 20141007
  Transmission Date: 20150528
  Serious: Yes (Hospitalization, Other)
  Sender: FDA-Public Use
  Company Number: AR-BRISTOL-MYERS SQUIBB COMPANY-16903668

PATIENT
  Age: 74 Year
  Sex: Female

DRUGS (4)
  1. ORENCIA [Suspect]
     Active Substance: ABATACEPT
     Indication: RHEUMATOID ARTHRITIS
     Dosage: LAST INF 16AUG12,RESTD:13DEC13,250MG 2,CONT UNTIL 14FEB14,SUSPED UNITIL 24APR14,LAST INF ON10SEP14.
     Route: 042
     Dates: start: 20050323
  2. ETORICOXIB [Concomitant]
     Active Substance: ETORICOXIB
     Route: 048
  3. METHOTREXATE [Suspect]
     Active Substance: METHOTREXATE
     Route: 048
  4. FOLIC ACID. [Concomitant]
     Active Substance: FOLIC ACID
     Route: 048

REACTIONS (4)
  - Basal cell carcinoma [Recovered/Resolved]
  - Coronary artery thrombosis [Recovering/Resolving]
  - Pneumonia [Recovering/Resolving]
  - Dacryostenosis acquired [Unknown]

NARRATIVE: CASE EVENT DATE: 20120802
